FAERS Safety Report 15748869 (Version 1)
Quarter: 2018Q4

REPORT INFORMATION
  Report Type: Spontaneous
  Country: US (occurrence: US)
  Receive Date: 20181221
  Receipt Date: 20181221
  Transmission Date: 20190205
  Serious: No
  Sender: FDA-Public Use
  Company Number: US-RECKITT BENCKISER HEALTHCARE INT LIMITED-RB-98087-2017

PATIENT
  Age: 6 Year
  Sex: Male

DRUGS (2)
  1. DELSYM [Suspect]
     Active Substance: DEXTROMETHORPHAN
     Indication: COUGH
     Dosage: DOSE OF 7.5 ML PO AT 7:30 AM AND  DOSE OF 5ML PO AT 17:00 PM
     Route: 048
     Dates: start: 20171106
  2. DELSYM [Suspect]
     Active Substance: DEXTROMETHORPHAN
     Indication: RESPIRATORY TRACT CONGESTION

REACTIONS (2)
  - Drug ineffective [Not Recovered/Not Resolved]
  - Accidental overdose [Recovered/Resolved]

NARRATIVE: CASE EVENT DATE: 20171106
